FAERS Safety Report 11443634 (Version 13)
Quarter: 2017Q1

REPORT INFORMATION
  Report Type: Report from Study
  Country: None (occurrence: BE)
  Receive Date: 20150901
  Receipt Date: 20170110
  Transmission Date: 20170428
  Serious: Yes (Hospitalization)
  Sender: FDA-Public Use
  Company Number: BE-ABBVIE-15P-013-1453406-00

PATIENT
  Sex: Female

DRUGS (14)
  1. DUODOPA [Suspect]
     Active Substance: CARBIDOPA\LEVODOPA
     Dosage: AM= 6 ML; CD= 2.5 ML/H DURING 16 HRS; ED= 1.5 ML
     Route: 050
     Dates: start: 20160728, end: 20170106
  2. DUODOPA [Suspect]
     Active Substance: CARBIDOPA\LEVODOPA
     Dosage: AM=6ML; CD=2.8ML/H; ED=1.5ML
     Route: 050
     Dates: start: 20160106, end: 20160728
  3. DOMPERIDON (MOTILIUM) [Concomitant]
     Indication: PRODUCT USED FOR UNKNOWN INDICATION
  4. LORMETAZEPAM (LORAMET) [Concomitant]
     Indication: PRODUCT USED FOR UNKNOWN INDICATION
  5. DUODOPA [Suspect]
     Active Substance: CARBIDOPA\LEVODOPA
     Dosage: AM=7ML; CD=2.8ML/HR DURING 16HRS ; ED=1.5ML
     Route: 050
     Dates: start: 20141202, end: 20160106
  6. ION(II)GLUCONATE (LOSFERRON) [Concomitant]
     Indication: PRODUCT USED FOR UNKNOWN INDICATION
  7. DUODOPA [Suspect]
     Active Substance: CARBIDOPA\LEVODOPA
     Dosage: AM= 7 ML; CD= 2 ML/H DURING 16 HRS; ED= 1.5 ML
     Route: 050
     Dates: start: 20170106
  8. LEVODOPA/CARBIDOPA/ENTACAPON (STALEVO 100) [Concomitant]
     Indication: PRODUCT USED FOR UNKNOWN INDICATION
     Dosage: FORM STRENGTH: 100MG/25MG/200MG. 6 TIMES/DAY IF NEEDED
  9. ACETYLSALICYLIC ACID (ASAFLOW) [Concomitant]
     Indication: PRODUCT USED FOR UNKNOWN INDICATION
  10. ALPRAZOLAM. [Concomitant]
     Active Substance: ALPRAZOLAM
     Indication: PRODUCT USED FOR UNKNOWN INDICATION
  11. DUODOPA [Suspect]
     Active Substance: CARBIDOPA\LEVODOPA
     Dosage: DOSES CONTINUOUSLY MONITORED AND ADAPTED
     Route: 050
     Dates: start: 20130802, end: 20141202
  12. BUMETANIDE (BURINEX) [Concomitant]
     Indication: PRODUCT USED FOR UNKNOWN INDICATION
  13. SIMVASTATIN. [Concomitant]
     Active Substance: SIMVASTATIN
     Indication: PRODUCT USED FOR UNKNOWN INDICATION
  14. DUODOPA [Suspect]
     Active Substance: CARBIDOPA\LEVODOPA
     Indication: PARKINSON^S DISEASE
     Dosage: AM=2ML; CD=4.2ML/HR DURING 16HRS; ED=2ML; ND=3ML/HR DURING 8HRS
     Route: 050
     Dates: start: 20130729, end: 20130802

REACTIONS (13)
  - Purulent discharge [Unknown]
  - Excessive granulation tissue [Not Recovered/Not Resolved]
  - Cough [Unknown]
  - Hyperhidrosis [Unknown]
  - Dystonia [Unknown]
  - Dyskinesia [Not Recovered/Not Resolved]
  - Stoma site infection [Unknown]
  - Stoma site discharge [Unknown]
  - Nausea [Unknown]
  - Pyrexia [Recovering/Resolving]
  - Device occlusion [Recovered/Resolved]
  - Stress [Unknown]
  - Freezing phenomenon [Unknown]
